FAERS Safety Report 4972992-3 (Version None)
Quarter: 2006Q2

REPORT INFORMATION
  Report Type: 
  Country: None (occurrence: None)
  Receive Date: 20060414
  Receipt Date: 20060214
  Transmission Date: 20061013
  Serious: Yes (Life-Threatening, Hospitalization)
  Sender: FDA-Public Use
  Company Number: JP-JPN-A200600610

PATIENT
  Age: 12 Year
  Sex: Female
  Weight: 30 kg

DRUGS (9)
  1. FLOLAN [Suspect]
     Route: 042
     Dates: start: 20060113
  2. WARFARIN [Concomitant]
     Indication: PULMONARY HYPERTENSION
     Dosage: 1MG PER DAY
     Route: 048
  3. PROCYLIN [Concomitant]
     Indication: PULMONARY HYPERTENSION
     Route: 048
  4. VIAGRA [Concomitant]
     Indication: PULMONARY HYPERTENSION
     Route: 048
  5. LASIX [Concomitant]
     Indication: PULMONARY HYPERTENSION
     Dosage: 40MG PER DAY
     Route: 048
  6. ALDACTONE [Concomitant]
     Indication: PULMONARY HYPERTENSION
     Dosage: 50MG PER DAY
     Route: 048
  7. HICEE [Concomitant]
     Indication: PULMONARY HYPERTENSION
     Dosage: 400MG PER DAY
     Route: 048
  8. TRACLEER [Concomitant]
     Indication: PULMONARY HYPERTENSION
     Dosage: 400MG PER DAY
     Route: 048
  9. DIGOSIN [Concomitant]
     Indication: PULMONARY HYPERTENSION
     Dosage: .2MG PER DAY
     Route: 048

REACTIONS (2)
  - CHEST PAIN [None]
  - PERICARDIAL EFFUSION [None]
